FAERS Safety Report 6536753-6 (Version None)
Quarter: 2010Q1

REPORT INFORMATION
  Report Type: 
  Country: None (occurrence: None)
  Receive Date: 20100113
  Receipt Date: 20100104
  Transmission Date: 20100710
  Serious: Yes (Disabling, Other)
  Sender: FDA-Public Use
  Company Number: US-CELGENEUS-163-21880-09081070

PATIENT
  Sex: Female

DRUGS (44)
  1. REVLIMID [Suspect]
     Indication: MULTIPLE MYELOMA
     Route: 048
     Dates: start: 20090720, end: 20090723
  2. REVLIMID [Suspect]
     Route: 048
     Dates: start: 20091007, end: 20091007
  3. AMLODIPINE BESYLATE [Concomitant]
     Indication: BLOOD PRESSURE
     Route: 048
     Dates: start: 20090319
  4. ATENOLOL [Concomitant]
     Indication: BLOOD PRESSURE
     Route: 048
     Dates: start: 20090319
  5. CAL-GEST [Concomitant]
     Indication: OSTEOPOROSIS
     Route: 048
     Dates: start: 20081201
  6. FENTANYL-100 [Concomitant]
     Indication: PAIN
     Dosage: 75 MCG/HR
     Route: 061
     Dates: start: 20090601
  7. GABAPENTIN [Concomitant]
     Indication: PAIN
     Route: 048
     Dates: start: 20090319
  8. GABAPENTIN [Concomitant]
  9. ACETAMINOPHEN [Concomitant]
     Indication: PAIN
     Dosage: 325MG-650MG
     Route: 048
     Dates: start: 20090302
  10. ACETAMINOPHEN [Concomitant]
  11. BISACODYL [Concomitant]
     Indication: CONSTIPATION
     Dosage: 1 SUPPOSITORY
     Route: 054
     Dates: start: 20090319
  12. DIPHENHYDRAMINE [Concomitant]
     Indication: DRUG USE FOR UNKNOWN INDICATION
     Route: 048
     Dates: start: 20090317
  13. DOCUSATE SODIUM [Concomitant]
     Indication: CONSTIPATION
     Route: 048
     Dates: start: 20090211
  14. HYDROCODONE BITARTRATE AND ACETAMINOPHEN [Concomitant]
     Indication: PAIN
     Dosage: 10-325
     Route: 048
     Dates: start: 20090421
  15. HYDROCODONE BITARTRATE AND ACETAMINOPHEN [Concomitant]
     Dosage: 10-325
     Route: 048
     Dates: start: 20090421
  16. METOCLOPRAMIDE [Concomitant]
     Indication: NAUSEA
     Route: 048
     Dates: start: 20090319
  17. NITROGLYCERIN [Concomitant]
     Indication: CHEST PAIN
     Route: 060
     Dates: start: 20090302
  18. NITROGLYCERIN [Concomitant]
     Route: 048
     Dates: start: 20090101
  19. PROCHLORPERAZINE [Concomitant]
     Indication: NAUSEA
     Route: 048
     Dates: start: 20090504
  20. PROCHLORPERAZINE [Concomitant]
     Route: 048
     Dates: start: 20090101
  21. SENNA-GEN NF [Concomitant]
     Indication: CONSTIPATION
     Route: 048
     Dates: start: 20090319
  22. SENNA-GEN NF [Concomitant]
     Route: 048
     Dates: start: 20090101
  23. MAGNESIUM CITRATE [Concomitant]
     Indication: CONSTIPATION
     Route: 048
     Dates: start: 20090120
  24. MAGNESIUM CITRATE [Concomitant]
     Route: 048
     Dates: start: 20090101
  25. WARFARIN [Concomitant]
     Route: 048
     Dates: start: 20090720
  26. WARFARIN [Concomitant]
     Route: 048
     Dates: start: 20090101
  27. DEXAMETHASONE [Concomitant]
     Route: 048
     Dates: start: 20090720
  28. DEXAMETHASONE [Concomitant]
     Route: 048
     Dates: start: 20090101
  29. LISINOPRIL [Concomitant]
     Indication: BLOOD PRESSURE
     Route: 048
     Dates: start: 20090319
  30. LISINOPRIL [Concomitant]
     Route: 048
     Dates: start: 20090101
  31. LORAZEPAM [Concomitant]
     Indication: ANXIETY
     Route: 048
     Dates: start: 20090424
  32. LORAZEPAM [Concomitant]
     Route: 048
     Dates: start: 20090101
  33. MIRTAZAPINE [Concomitant]
     Indication: DEPRESSION
     Route: 048
     Dates: start: 20090209
  34. MIRTAZAPINE [Concomitant]
     Route: 048
     Dates: start: 20090101
  35. OMEPRAZOLE [Concomitant]
     Indication: ANTACID THERAPY
     Route: 048
     Dates: start: 20090508
  36. OMEPRAZOLE [Concomitant]
     Route: 048
     Dates: start: 20090101
  37. PREDNISONE [Concomitant]
     Indication: INFLAMMATION
     Route: 048
     Dates: start: 20090319
  38. PREDNISONE [Concomitant]
     Indication: STEVENS-JOHNSON SYNDROME
     Route: 048
     Dates: start: 20090101
  39. TAB-A-VITE [Concomitant]
     Indication: NAUSEA
     Route: 048
     Dates: start: 20081201
  40. TAB-A-VITE [Concomitant]
     Route: 048
     Dates: start: 20090101
  41. VITAMIN D [Concomitant]
     Indication: VITAMIN SUPPLEMENTATION
     Dosage: 1,000 UNITS
     Route: 048
     Dates: start: 20081201
  42. VITAMIN D [Concomitant]
     Route: 048
     Dates: start: 20090101
  43. METFORMIN HCL [Concomitant]
     Route: 048
  44. METFORMIN HCL [Concomitant]
     Route: 048
     Dates: start: 20090101

REACTIONS (3)
  - RASH [None]
  - THROAT TIGHTNESS [None]
  - URTICARIA [None]
